FAERS Safety Report 6420016-3 (Version None)
Quarter: 2009Q4

REPORT INFORMATION
  Report Type: 
  Country: None (occurrence: None)
  Receive Date: 20091029
  Receipt Date: 20081006
  Transmission Date: 20100525
  Serious: No
  Sender: FDA-Public Use
  Company Number: A0750826A

PATIENT
  Sex: Male

DRUGS (10)
  1. IMITREX [Suspect]
     Indication: MIGRAINE
     Route: 045
     Dates: start: 20030101, end: 20030101
  2. IMITREX [Suspect]
     Dosage: 6MG SINGLE DOSE
     Route: 058
     Dates: start: 20081006
  3. SYNTHROID [Concomitant]
  4. ZYRTEC [Concomitant]
  5. METFORMIN HCL [Concomitant]
  6. AMBIEN CR [Concomitant]
  7. ATIVAN [Concomitant]
  8. EMETROL [Concomitant]
  9. ALLEGRA [Concomitant]
  10. NOROXIN [Concomitant]

REACTIONS (5)
  - PALPITATIONS [None]
  - PARAESTHESIA [None]
  - PRURITUS [None]
  - SENSORY DISTURBANCE [None]
  - TREMOR [None]
